FAERS Safety Report 17551452 (Version 1)
Quarter: 2020Q1

REPORT INFORMATION
  Report Type: Spontaneous
  Country: US (occurrence: US)
  Receive Date: 20200317
  Receipt Date: 20200317
  Transmission Date: 20200409
  Serious: Yes (Other)
  Sender: FDA-Public Use
  Company Number: None

PATIENT
  Age: 73 Year
  Sex: Female
  Weight: 69.75 kg

DRUGS (18)
  1. BUTALBITAL/APAP/CAFFEINE 50-300-40 [Concomitant]
  2. CALCIUM +D 600/200MG [Concomitant]
  3. DOCUSATE 100MG [Concomitant]
     Active Substance: DOCUSATE
  4. SENNA-DOCUSATE 8.6-50MG [Concomitant]
  5. QUETIAPINE 25MG [Concomitant]
     Active Substance: QUETIAPINE
  6. DEXILANT [Concomitant]
     Active Substance: DEXLANSOPRAZOLE
  7. CHLORPHENIRAMINE 4MG [Concomitant]
  8. PRESERVISION AREDS 2 [Concomitant]
     Active Substance: MINERALS\VITAMINS
  9. CARBAMAZEPINE 200MG [Concomitant]
     Active Substance: CARBAMAZEPINE
  10. VITAMIN D 25MCG [Concomitant]
  11. CHLORDIAZEPOXIDE 10MG [Concomitant]
  12. ACETAMINOPHEN 500MG [Concomitant]
     Active Substance: ACETAMINOPHEN
  13. LEVOTHYROXINE 125MCG [Concomitant]
     Active Substance: LEVOTHYROXINE SODIUM
  14. LORATADINE 10MG [Concomitant]
     Active Substance: LORATADINE
  15. SERTRALINE 50MG [Concomitant]
     Active Substance: SERTRALINE HYDROCHLORIDE
  16. CAPECITABINE. [Suspect]
     Active Substance: CAPECITABINE
     Indication: BREAST CANCER FEMALE
     Dosage: ?          OTHER FREQUENCY:BID X14 DAYS, 7OFF;?
     Route: 048
     Dates: start: 20200311
  17. VITAMIN B COMPLEX [Concomitant]
     Active Substance: CYANOCOBALAMIN\DEXPANTHENOL\NIACINAMIDE\PYRIDOXINE HYDROCHLORIDE\RIBOFLAVIN 5^-PHOSPHATE SODIUM\THIAMINE HYDROCHLORIDE\VITAMIN B COMPLEX
  18. HYDROXYZINE 25MG [Concomitant]

REACTIONS (1)
  - Palmar-plantar erythrodysaesthesia syndrome [None]

NARRATIVE: CASE EVENT DATE: 20200205
